FAERS Safety Report 13011027 (Version 1)
Quarter: 2016Q4

REPORT INFORMATION
  Report Type: Spontaneous
  Country: US (occurrence: US)
  Receive Date: 20161208
  Receipt Date: 20161208
  Transmission Date: 20170207
  Serious: Yes (Hospitalization)
  Sender: FDA-Public Use
  Company Number: US-ACTELION-A-US2016-146296

PATIENT
  Age: 37 Year
  Sex: Female

DRUGS (7)
  1. BACTRIM [Concomitant]
     Active Substance: SULFAMETHOXAZOLE\TRIMETHOPRIM
  2. CLARITIN [Concomitant]
     Active Substance: LORATADINE
  3. ADCIRCA [Suspect]
     Active Substance: TADALAFIL
     Indication: PRODUCT USED FOR UNKNOWN INDICATION
     Route: 065
  4. POTASSIUM [Concomitant]
     Active Substance: POTASSIUM
  5. AMBRISENTAN [Suspect]
     Active Substance: AMBRISENTAN
     Indication: PULMONARY HYPERTENSION
     Dosage: 10 MG, UNK
     Route: 065
     Dates: start: 20150707
  6. PEPCID [Concomitant]
     Active Substance: FAMOTIDINE
  7. VELETRI [Suspect]
     Active Substance: EPOPROSTENOL
     Indication: PULMONARY ARTERIAL HYPERTENSION
     Dosage: 24 NG/KG, PER MIN
     Route: 042

REACTIONS (1)
  - Haemoptysis [Not Recovered/Not Resolved]

NARRATIVE: CASE EVENT DATE: 20161128
